FAERS Safety Report 6303486-0 (Version None)
Quarter: 2009Q3

REPORT INFORMATION
  Report Type: 
  Country: None (occurrence: None)
  Receive Date: 20090810
  Receipt Date: 20090805
  Transmission Date: 20100115
  Serious: Yes (Life-Threatening, Hospitalization)
  Sender: FDA-Public Use
  Company Number: PHHY2009GB25932

PATIENT
  Sex: Female

DRUGS (2)
  1. EXJADE [Suspect]
     Indication: MYELODYSPLASTIC SYNDROME
     Dosage: 1750 MG DAILY
     Dates: start: 20080101
  2. EXJADE [Suspect]
     Indication: IRON OVERLOAD

REACTIONS (2)
  - INJECTION SITE INFECTION [None]
  - SEPSIS [None]
